FAERS Safety Report 5432113-X (Version None)
Quarter: 2007Q3

REPORT INFORMATION
  Report Type: 
  Country: None (occurrence: None)
  Receive Date: 20070830
  Receipt Date: 20070822
  Transmission Date: 20080115
  Serious: Yes (Other)
  Sender: FDA-Public Use
  Company Number: US-PFIZER INC-2007070327

PATIENT
  Sex: Male

DRUGS (18)
  1. LIPITOR [Suspect]
     Indication: BLOOD CHOLESTEROL INCREASED
  2. CHANTIX [Suspect]
     Indication: SMOKING CESSATION THERAPY
     Dates: start: 20070801, end: 20070801
  3. KLONOPIN [Concomitant]
  4. LAMICTAL [Concomitant]
  5. ALBUTEROL [Concomitant]
  6. ATROVENT [Concomitant]
  7. ADVAIR DISKUS 100/50 [Concomitant]
  8. PREDNISONE [Concomitant]
     Route: 047
  9. PREDNISONE [Concomitant]
  10. ASPIRIN [Concomitant]
  11. IBUPROFEN [Concomitant]
  12. MULTIVITAMIN [Concomitant]
  13. VICODIN [Concomitant]
  14. VERAPAMIL [Concomitant]
  15. VALSARTAN [Concomitant]
  16. ACCOLATE [Concomitant]
  17. PRILOSEC [Concomitant]
  18. METOPROLOL SUCCINATE [Concomitant]

REACTIONS (6)
  - BRONCHITIS [None]
  - INITIAL INSOMNIA [None]
  - INSOMNIA [None]
  - IRRITABILITY [None]
  - LIVER FUNCTION TEST ABNORMAL [None]
  - LOWER RESPIRATORY TRACT INFECTION [None]
